FAERS Safety Report 7894025-1 (Version None)
Quarter: 2011Q4

REPORT INFORMATION
  Report Type: 
  Country: None (occurrence: None)
  Receive Date: 20111104
  Receipt Date: 20111031
  Transmission Date: 20120403
  Serious: Yes (Death, Hospitalization)
  Sender: FDA-Public Use
  Company Number: US-ACTELION-A-US2011-51162

PATIENT

DRUGS (4)
  1. TRACLEER [Suspect]
     Indication: PULMONARY ARTERIAL HYPERTENSION
     Dosage: UNK MG, UNK
     Route: 048
     Dates: start: 20021119, end: 20110101
  2. COUMADIN [Concomitant]
  3. OXYGEN [Concomitant]
  4. ADCIRCA [Concomitant]

REACTIONS (3)
  - HEAD INJURY [None]
  - DEATH [None]
  - DYSPNOEA [None]
